FAERS Safety Report 19899019 (Version 2)
Quarter: 2021Q4

REPORT INFORMATION
  Report Type: Spontaneous
  Country: AU (occurrence: AU)
  Receive Date: 20210929
  Receipt Date: 20211119
  Transmission Date: 20220303
  Serious: Yes (Other)
  Sender: FDA-Public Use
  Company Number: AU-NOVARTISPH-NVSC2021AU215835

PATIENT
  Age: 67 Year
  Sex: Female

DRUGS (4)
  1. BEOVU [Suspect]
     Active Substance: BROLUCIZUMAB-DBLL
     Indication: Neovascular age-related macular degeneration
     Dosage: UNK, EVERY 8 WEEKS, (RIGHT EYE)
     Route: 031
     Dates: start: 20201110
  2. BEOVU [Suspect]
     Active Substance: BROLUCIZUMAB-DBLL
     Dosage: UNK, (RIGHT EYE)
     Route: 065
     Dates: start: 20210407
  3. BEOVU [Suspect]
     Active Substance: BROLUCIZUMAB-DBLL
     Dosage: UNK, (RIGHT EYE)
     Route: 065
     Dates: start: 20210602
  4. BEOVU [Suspect]
     Active Substance: BROLUCIZUMAB-DBLL
     Dosage: UNK, EVERY 8 WEEKS, (RIGHT EYE)
     Route: 031
     Dates: start: 20210908

REACTIONS (4)
  - Retinal aneurysm [Unknown]
  - Retinal haemorrhage [Unknown]
  - Arteriosclerotic retinopathy [Unknown]
  - Retinal vein occlusion [Recovered/Resolved]

NARRATIVE: CASE EVENT DATE: 20210602
